FAERS Safety Report 4678081-X (Version None)
Quarter: 2005Q2

REPORT INFORMATION
  Report Type: 
  Country: None (occurrence: None)
  Receive Date: 20050601
  Receipt Date: 20050520
  Transmission Date: 20051028
  Serious: Yes (Hospitalization, Other)
  Sender: FDA-Public Use
  Company Number: GB-JNJFOC-20050406588

PATIENT
  Sex: Male
  Weight: 80 kg

DRUGS (11)
  1. REMICADE [Suspect]
     Indication: ANKYLOSING SPONDYLITIS
     Route: 042
  2. METHOTREXATE [Concomitant]
  3. FOLIC ACID [Concomitant]
  4. ENALAPRIL MALEATE [Concomitant]
  5. DILTIAZEM [Concomitant]
  6. BENDROFLUAZIDE [Concomitant]
  7. THEOPHYLLINE [Concomitant]
  8. FOSAMAX [Concomitant]
  9. TRAMADOL HCL [Concomitant]
  10. DURAGESIC-100 [Concomitant]
  11. PREDNISOLONE [Concomitant]

REACTIONS (2)
  - LOWER LIMB FRACTURE [None]
  - WOUND INFECTION [None]
